FAERS Safety Report 15341004 (Version 1)
Quarter: 2018Q3

REPORT INFORMATION
  Report Type: Report from Study
  Country: US (occurrence: US)
  Receive Date: 20180831
  Receipt Date: 20180831
  Transmission Date: 20181010
  Serious: Yes (Other)
  Sender: FDA-Public Use
  Company Number: US-TEVA-2018-US-949143

PATIENT
  Age: 37 Year
  Sex: Female

DRUGS (1)
  1. COPAXONE [Suspect]
     Active Substance: GLATIRAMER ACETATE
     Indication: MULTIPLE SCLEROSIS
     Route: 058
     Dates: start: 20180612, end: 20180625

REACTIONS (4)
  - Urticaria [Unknown]
  - Vomiting [Unknown]
  - Skin burning sensation [Unknown]
  - Throat tightness [Unknown]

NARRATIVE: CASE EVENT DATE: 201806
